FAERS Safety Report 6959806 (Version 5)
Quarter: 2015Q3

REPORT INFORMATION
  Report Type: Spontaneous
  Country: DE (occurrence: DE)
  Receive Date: 20090403
  Receipt Date: 20150924
  Transmission Date: 20151125
  Serious: Yes (Hospitalization, Other)
  Sender: FDA-Public Use
  Company Number: DE-ROXANE LABORATORIES, INC.-2009-RO-00317RO

PATIENT
  Age: 3 Year
  Sex: Male
  Weight: 13 kg

DRUGS (9)
  1. CODEINE SULFATE. [Suspect]
     Active Substance: CODEINE SULFATE
     Indication: ANTITUSSIVE THERAPY
     Route: 065
  2. IVY EXTRACT [Suspect]
     Active Substance: IVY EXTRACT
     Indication: COUGH
     Route: 065
  3. IBUPROFEN. [Suspect]
     Active Substance: IBUPROFEN
     Indication: PYREXIA
  4. ACETAMINOPHEN. [Suspect]
     Active Substance: ACETAMINOPHEN
     Indication: PYREXIA
  5. CATECHOLAMINES [Concomitant]
     Active Substance: UNSPECIFIED INGREDIENT
     Indication: HYPOTENSION
     Route: 065
  6. ANTIBIOTICS [Concomitant]
     Active Substance: UNSPECIFIED INGREDIENT
     Indication: PNEUMONIA ASPIRATION
     Route: 065
  7. ACETAMINOPHEN. [Suspect]
     Active Substance: ACETAMINOPHEN
     Indication: COUGH
     Route: 065
  8. IBUPROFEN. [Suspect]
     Active Substance: IBUPROFEN
     Indication: COUGH
     Route: 065
  9. IVY EXTRACT [Suspect]
     Active Substance: IVY EXTRACT
     Indication: PYREXIA

REACTIONS (11)
  - Vomiting [Recovered/Resolved]
  - Apnoea [Recovered/Resolved]
  - Moraxella infection [Recovered/Resolved]
  - Confusional state [Recovered/Resolved]
  - Drug administration error [Recovered/Resolved]
  - Metapneumovirus infection [Recovered/Resolved]
  - Hypotension [Recovered/Resolved]
  - Toxicity to various agents [Recovered/Resolved]
  - Accidental overdose [Recovered/Resolved]
  - Coma [Recovered/Resolved]
  - Pneumonia aspiration [Recovered/Resolved]
